FAERS Safety Report 6165132-9 (Version None)
Quarter: 2009Q2

REPORT INFORMATION
  Report Type: 
  Country: None (occurrence: None)
  Receive Date: 20090423
  Receipt Date: 20090416
  Transmission Date: 20091009
  Serious: Yes (Hospitalization)
  Sender: FDA-Public Use
  Company Number: TR-ASTRAZENECA-2009SE01522

PATIENT
  Sex: Male
  Weight: 103 kg

DRUGS (2)
  1. CASODEX [Suspect]
     Indication: PROSTATE CANCER
     Route: 048
     Dates: start: 20080416, end: 20090325
  2. LUCRIN [Suspect]
     Dates: start: 20080416, end: 20090120

REACTIONS (3)
  - COUGH [None]
  - DYSPNOEA [None]
  - INTERSTITIAL LUNG DISEASE [None]
